FAERS Safety Report 25382169 (Version 1)
Quarter: 2025Q2

REPORT INFORMATION
  Report Type: Report from Study
  Country: US (occurrence: US)
  Receive Date: 20250531
  Receipt Date: 20250531
  Transmission Date: 20250716
  Serious: No
  Sender: CELLTRION
  Company Number: US-CELLTRION INC.-2025US015120

PATIENT

DRUGS (2)
  1. INFLIXIMAB-DYYB [Suspect]
     Active Substance: INFLIXIMAB-DYYB
     Indication: Colitis ulcerative
     Dosage: 120 MG EVERY TWO WEEKS
     Route: 058
     Dates: start: 20250427
  2. INFLIXIMAB-DYYB [Suspect]
     Active Substance: INFLIXIMAB-DYYB
     Dosage: 120 MG EVERY TWO WEEKS
     Route: 058
     Dates: start: 20250511

REACTIONS (1)
  - Injection site rash [Recovered/Resolved]

NARRATIVE: CASE EVENT DATE: 20250427
